FAERS Safety Report 22618978 (Version 1)
Quarter: 2023Q2

REPORT INFORMATION
  Report Type: Spontaneous
  Country: US (occurrence: US)
  Receive Date: 20230620
  Receipt Date: 20230620
  Transmission Date: 20230722
  Serious: No
  Sender: FDA-Public Use
  Company Number: US-AUROBINDO-AUR-APL-2023-009782

PATIENT
  Age: 86 Year
  Sex: Male
  Weight: 79.832 kg

DRUGS (1)
  1. TAMSULOSIN HYDROCHLORIDE [Suspect]
     Active Substance: TAMSULOSIN HYDROCHLORIDE
     Indication: Prostatic adenoma
     Dosage: TWICE A DAY
     Route: 065

REACTIONS (2)
  - No adverse event [Unknown]
  - Expired product administered [Unknown]
